FAERS Safety Report 7730224-7 (Version None)
Quarter: 2011Q3

REPORT INFORMATION
  Report Type: 
  Country: None (occurrence: None)
  Receive Date: 20110906
  Receipt Date: 20110831
  Transmission Date: 20111222
  Serious: Yes (Hospitalization, Other)
  Sender: FDA-Public Use
  Company Number: PHHY2011US13687

PATIENT
  Sex: Female
  Weight: 85.261 kg

DRUGS (6)
  1. LORTAB [Concomitant]
     Indication: PAIN
     Dosage: 7.5 MG, PRN
     Route: 048
  2. GILENYA [Suspect]
     Indication: MULTIPLE SCLEROSIS
     Dosage: 0.5 MG, QD
     Route: 048
     Dates: start: 20110119
  3. LEXAPRO [Concomitant]
     Indication: DEPRESSION
     Dosage: 20 MG, QD
     Route: 048
  4. CELEBREX [Concomitant]
     Indication: ARTHRALGIA
     Dosage: 200 MG, QD
     Route: 048
  5. NORVASC [Concomitant]
     Indication: HYPERTENSION
     Dosage: 10 MG, QD
     Route: 048
  6. FENTANYL [Concomitant]
     Indication: PAIN
     Dosage: 7.5 MG, Q48H
     Route: 062

REACTIONS (16)
  - MULTIPLE SCLEROSIS RELAPSE [None]
  - NAUSEA [None]
  - DYSPHEMIA [None]
  - ASTHENIA [None]
  - PAIN [None]
  - DIPLOPIA [None]
  - VISION BLURRED [None]
  - FATIGUE [None]
  - FALL [None]
  - DIZZINESS [None]
  - GAIT DISTURBANCE [None]
  - MYALGIA [None]
  - MALAISE [None]
  - URINARY INCONTINENCE [None]
  - NEURALGIA [None]
  - LOSS OF CONSCIOUSNESS [None]
